FAERS Safety Report 5632038-0 (Version None)
Quarter: 2008Q1

REPORT INFORMATION
  Report Type: 
  Country: None (occurrence: None)
  Receive Date: 20080220
  Receipt Date: 20080220
  Transmission Date: 20080703
  Serious: Yes (Other)
  Sender: FDA-Public Use
  Company Number: A0710630A

PATIENT
  Age: 53 Year
  Sex: Female

DRUGS (1)
  1. ALLI [Suspect]
     Indication: WEIGHT LOSS DIET
     Route: 048
     Dates: start: 20080216, end: 20080216

REACTIONS (6)
  - DYSPNOEA [None]
  - HEART RATE DECREASED [None]
  - HYPERSENSITIVITY [None]
  - MEMORY IMPAIRMENT [None]
  - PHARYNGEAL OEDEMA [None]
  - URTICARIA [None]
